FAERS Safety Report 9282623 (Version 4)
Quarter: 2015Q1

REPORT INFORMATION
  Report Type: Spontaneous
  Country: US (occurrence: US)
  Receive Date: 20130510
  Receipt Date: 20150319
  Transmission Date: 20150721
  Serious: Yes (Other)
  Sender: FDA-Public Use
  Company Number: US-BAYER-2013-057709

PATIENT
  Age: 42 Year
  Sex: Female
  Weight: 85 kg

DRUGS (7)
  1. LYRICA [Concomitant]
     Active Substance: PREGABALIN
  2. OCELLA [Suspect]
     Active Substance: DROSPIRENONE\ETHINYL ESTRADIOL
     Dosage: UNK
     Dates: start: 200807, end: 200906
  3. YAZ [Suspect]
     Active Substance: DROSPIRENONE\ETHINYL ESTRADIOL
  4. NORCO [Concomitant]
     Active Substance: ACETAMINOPHEN\HYDROCODONE BITARTRATE
     Indication: SCOLIOSIS
     Dosage: UNK
     Dates: start: 2002
  5. HYDROCODONE/ACETAMINOPHEN [Concomitant]
     Active Substance: ACETAMINOPHEN\HYDROCODONE
  6. ALPRAZOLAM. [Concomitant]
     Active Substance: ALPRAZOLAM
  7. TRAMADOL [Concomitant]
     Active Substance: TRAMADOL

REACTIONS (6)
  - Cerebrovascular accident [None]
  - Injury [None]
  - Abdominal pain [None]
  - Monoparesis [None]
  - Pain [None]
  - General physical health deterioration [None]

NARRATIVE: CASE EVENT DATE: 200905
